FAERS Safety Report 24776913 (Version 1)
Quarter: 2024Q4

REPORT INFORMATION
  Report Type: Spontaneous
  Country: US (occurrence: US)
  Receive Date: 20241226
  Receipt Date: 20241226
  Transmission Date: 20250115
  Serious: Yes (Other)
  Sender: BAYER HEALTHCARE LLC
  Company Number: US-BAYER-2024A178009

PATIENT
  Age: 82 Year
  Sex: Female

DRUGS (2)
  1. CORICIDIN HBP COLD AND FLU [Suspect]
     Active Substance: ACETAMINOPHEN\CHLORPHENIRAMINE MALEATE
     Indication: Hypersensitivity
     Route: 048
  2. CORICIDIN HBP COLD AND FLU [Suspect]
     Active Substance: ACETAMINOPHEN\CHLORPHENIRAMINE MALEATE
     Indication: Nasopharyngitis

REACTIONS (4)
  - Foreign body in throat [Unknown]
  - Illness [Unknown]
  - Vomiting [Unknown]
  - Expired product administered [Unknown]
